FAERS Safety Report 9688480 (Version 1)
Quarter: 2013Q4

REPORT INFORMATION
  Report Type: Spontaneous
  Country: US (occurrence: None)
  Receive Date: 20131112
  Receipt Date: 20131112
  Transmission Date: 20140711
  Serious: Yes (Other)
  Sender: FDA-Public Use
  Company Number: 2013AP009416

PATIENT
  Sex: Female

DRUGS (4)
  1. ALENDRONATE [Suspect]
     Indication: OSTEOPOROSIS
     Dates: start: 199706, end: 201101
  2. ALENDRONATE [Suspect]
     Indication: OSTEOPENIA
     Dates: start: 199706, end: 201101
  3. ALENDRONATE SODIUM TABLETS [Suspect]
     Indication: OSTEOPOROSIS
     Dates: start: 199706, end: 201101
  4. ALENDRONATE SODIUM TABLETS [Suspect]
     Indication: OSTEOPENIA
     Dates: start: 199706, end: 201101

REACTIONS (5)
  - Femur fracture [None]
  - Bone disorder [None]
  - Pain [None]
  - Multiple injuries [None]
  - Emotional distress [None]
